FAERS Safety Report 25970837 (Version 3)
Quarter: 2025Q4

REPORT INFORMATION
  Report Type: Spontaneous
  Country: EU (occurrence: EU)
  Receive Date: 20251028
  Receipt Date: 20251104
  Transmission Date: 20260118
  Serious: No
  Sender: PFIZER
  Company Number: EU-STADA-01465751

PATIENT
  Age: 72 Year
  Sex: Female

DRUGS (19)
  1. DALTEPARIN SODIUM [Suspect]
     Active Substance: DALTEPARIN SODIUM
     Dosage: UNK
     Route: 023
     Dates: start: 201501, end: 201501
  2. DALTEPARIN SODIUM [Suspect]
     Active Substance: DALTEPARIN SODIUM
     Dosage: UNK
     Route: 061
     Dates: start: 201501, end: 201501
  3. HEPARIN CALCIUM [Concomitant]
     Active Substance: HEPARIN CALCIUM
     Dosage: UNK
     Route: 023
  4. HEPARIN CALCIUM [Concomitant]
     Active Substance: HEPARIN CALCIUM
     Dosage: UNK
     Route: 061
  5. LIQUEMIN [HEPARIN] [Concomitant]
     Dosage: UNK
     Route: 023
     Dates: start: 201501, end: 201501
  6. LIQUEMIN [HEPARIN] [Concomitant]
     Dosage: UNK
     Route: 061
  7. NADROPARIN CALCIUM [Concomitant]
     Active Substance: NADROPARIN CALCIUM
     Dosage: UNK
     Route: 023
     Dates: start: 201501, end: 201501
  8. NADROPARIN CALCIUM [Concomitant]
     Active Substance: NADROPARIN CALCIUM
     Dosage: UNK
     Route: 061
  9. ENOXAPARIN SODIUM [Concomitant]
     Active Substance: ENOXAPARIN SODIUM
     Dosage: UNK
     Route: 023
     Dates: start: 201501, end: 201501
  10. ENOXAPARIN SODIUM [Concomitant]
     Active Substance: ENOXAPARIN SODIUM
     Dosage: UNK
     Route: 061
  11. CERTOPARIN SODIUM [Concomitant]
     Active Substance: CERTOPARIN SODIUM
     Dosage: UNK
     Route: 023
     Dates: start: 201501, end: 201501
  12. CERTOPARIN SODIUM [Concomitant]
     Active Substance: CERTOPARIN SODIUM
     Dosage: UNK
     Route: 061
  13. ARIXTRA [Concomitant]
     Active Substance: FONDAPARINUX SODIUM
     Dosage: UNK
     Route: 023
  14. ARIXTRA [Concomitant]
     Active Substance: FONDAPARINUX SODIUM
     Dosage: UNK
     Route: 061
  15. ARIXTRA [Concomitant]
     Active Substance: FONDAPARINUX SODIUM
     Dosage: 1.5 MG, SINGLE
     Route: 058
     Dates: start: 201504
  16. ARIXTRA [Concomitant]
     Active Substance: FONDAPARINUX SODIUM
     Dosage: UNK
     Dates: start: 202205
  17. FIBREZYM [Concomitant]
     Dosage: UNK
     Route: 023
  18. FIBREZYM [Concomitant]
     Dosage: UNK
     Route: 061
  19. FIBREZYM [Concomitant]
     Dosage: 0.5 MG, SINGLE
     Route: 058
     Dates: start: 201504

REACTIONS (5)
  - Injection site erythema [Unknown]
  - Injection site urticaria [Unknown]
  - Injection site extravasation [Unknown]
  - Injection site vesicles [Unknown]
  - Application site irritation [Recovered/Resolved]

NARRATIVE: CASE EVENT DATE: 20150101
